FAERS Safety Report 20857640 (Version 1)
Quarter: 2022Q2

REPORT INFORMATION
  Report Type: Spontaneous
  Country: GB (occurrence: GB)
  Receive Date: 20220521
  Receipt Date: 20220521
  Transmission Date: 20220720
  Serious: Yes (Other)
  Sender: FDA-Public Use
  Company Number: GB-MHRA-TPP18804610C4082163YC1651738206532

PATIENT
  Age: 67 Year
  Sex: Female
  Weight: 90 kg

DRUGS (16)
  1. NITROFURANTOIN [Suspect]
     Active Substance: NITROFURANTOIN
     Indication: Product used for unknown indication
     Dosage: UNK
     Route: 065
     Dates: start: 20220503
  2. ANASTROZOLE [Concomitant]
     Active Substance: ANASTROZOLE
     Indication: Product used for unknown indication
     Dosage: 1 DOSAGE FORM, ONCE A DAY  (TAKE ONE DAILY)
     Route: 065
     Dates: start: 20210907
  3. ASPIRIN [Concomitant]
     Active Substance: ASPIRIN
     Indication: Product used for unknown indication
     Dosage: 1 DOSAGE FORM, ONCE A DAY (TAKE ONE DAILY AFTER BREAKFAST)
     Route: 065
     Dates: start: 20210701
  4. BENDROFLUMETHIAZIDE [Concomitant]
     Active Substance: BENDROFLUMETHIAZIDE
     Indication: Product used for unknown indication
     Dosage: 1 DOSAGE FORM, ONCE A DAY (TAKE ONE EACH MORNING)
     Route: 065
     Dates: start: 20220505
  5. CETIRIZINE [Concomitant]
     Active Substance: CETIRIZINE HYDROCHLORIDE
     Indication: Product used for unknown indication
     Dosage: 1 DOSAGE FORM, ONCE A DAY (TAKE ONE DAILY)
     Route: 065
     Dates: start: 20210701, end: 20220311
  6. BECLOMETHASONE DIPROPIONATE [Concomitant]
     Active Substance: BECLOMETHASONE DIPROPIONATE
     Indication: Product used for unknown indication
     Dosage: UNK (INHALE 2 PUFFS TWICE A DAY EVERY DAY)
     Route: 065
     Dates: start: 20210701
  7. COCODAMOL [Concomitant]
     Active Substance: ACETAMINOPHEN\CODEINE PHOSPHATE
     Indication: Product used for unknown indication
     Dosage: UNK (TAKE 1 IF NEEDED AS DISCUSSED TO HELP WITH LOOS...)
     Route: 065
     Dates: start: 20210701, end: 20220311
  8. DICLOFENAC SODIUM [Concomitant]
     Active Substance: DICLOFENAC SODIUM
     Indication: Product used for unknown indication
     Dosage: 1 DOSAGE FORM, TWO TIMES A DAY  (TAKE ONE TWICE DAILY)
     Route: 065
     Dates: start: 20210701
  9. NITROGLYCERIN [Concomitant]
     Active Substance: NITROGLYCERIN
     Indication: Product used for unknown indication
     Dosage: UNK (WHEN ANGINA STARTS, 300MICGROGRAMS TO 1MG OF GL...)
     Route: 065
     Dates: start: 20210701
  10. NICORANDIL [Concomitant]
     Active Substance: NICORANDIL
     Indication: Product used for unknown indication
     Dosage: 1 DOSAGE FORM, TWO TIMES A DAY (TAKE ONE TWICE DAILY)
     Route: 065
     Dates: start: 20210701, end: 20220311
  11. OMEPRAZOLE [Concomitant]
     Active Substance: OMEPRAZOLE
     Indication: Product used for unknown indication
     Dosage: 1 DOSAGE FORM, ONCE A DAY  (TAKE ONE CAPSULE DAILY)
     Route: 065
     Dates: start: 20210701
  12. OTOMIZE [Concomitant]
     Indication: Product used for unknown indication
     Dosage: 1 DOSAGE FORM, 3 TIMES A DAY (SPRAY ONCE INTO THE AFFECTED EAR(S) THREE TIMES...)
     Route: 065
     Dates: start: 20220503
  13. PROCHLORPERAZINE [Concomitant]
     Active Substance: PROCHLORPERAZINE
     Indication: Dizziness
     Dosage: 1 DOSAGE FORM, 3 TIMES A DAY (ONE TABLET THREE TIMES A DAY FOR DIZZINESS)
     Route: 065
     Dates: start: 20220311, end: 20220408
  14. ROSUVASTATIN [Concomitant]
     Active Substance: ROSUVASTATIN
     Indication: Ill-defined disorder
     Dosage: UNK (TAKE AS DIRECTED BY HOSPITAL)
     Route: 065
     Dates: start: 20210701
  15. ALBUTEROL [Concomitant]
     Active Substance: ALBUTEROL
     Indication: Ill-defined disorder
     Dosage: UNK (INHALE 2 PUFFS UPTO 4 TIMES PER DAY WHEN REQUIR...)
     Route: 065
     Dates: start: 20210701
  16. ZEMTARD [Concomitant]
     Indication: Product used for unknown indication
     Dosage: 1 DOSAGE FORM, ONCE A DAY  (TAKE ONE DAILY)
     Route: 065
     Dates: start: 20210701

REACTIONS (2)
  - Headache [Recovered/Resolved]
  - Chills [Unknown]

NARRATIVE: CASE EVENT DATE: 20220505
